FAERS Safety Report 6996485-7 (Version None)
Quarter: 2010Q3

REPORT INFORMATION
  Report Type: 
  Country: None (occurrence: None)
  Receive Date: 20100918
  Receipt Date: 20090408
  Transmission Date: 20110219
  Serious: No
  Sender: FDA-Public Use
  Company Number: US-WYE-H08401809

PATIENT
  Age: 73 Year
  Sex: Male
  Weight: 81.72 kg

DRUGS (5)
  1. ALAVERT [Suspect]
     Indication: RHINORRHOEA
     Dosage: ONE TABLET ONE TIME
     Route: 048
     Dates: start: 20081201, end: 20081201
  2. ALAVERT [Suspect]
     Indication: EYE PRURITUS
  3. ALAVERT [Suspect]
     Indication: LACRIMATION INCREASED
  4. METOPROLOL [Suspect]
  5. NORVASC [Suspect]

REACTIONS (8)
  - CONDITION AGGRAVATED [None]
  - DRUG INEFFECTIVE [None]
  - DRUG INTERACTION [None]
  - EYE PRURITUS [None]
  - HYPERTENSION [None]
  - LACRIMATION INCREASED [None]
  - RHINORRHOEA [None]
  - TREMOR [None]
